FAERS Safety Report 18557581 (Version 1)
Quarter: 2020Q4

REPORT INFORMATION
  Report Type: Spontaneous
  Country: US (occurrence: US)
  Receive Date: 20201130
  Receipt Date: 20201130
  Transmission Date: 20210114
  Serious: Yes (Hospitalization, Other)
  Sender: FDA-Public Use
  Company Number: US-009507513-2011USA015704

PATIENT
  Age: 52 Year
  Sex: Male
  Weight: 88 kg

DRUGS (19)
  1. NIASPAN [Suspect]
     Active Substance: NIACIN
     Dosage: 1 TAB (1000 MG), 1 TAB (500 MG) QHS (1500 MG 1
     Route: 065
     Dates: start: 2010, end: 201107
  2. NIASPAN [Suspect]
     Active Substance: NIACIN
     Dosage: 1 TAB (1000 MG), 1 TAB (500 MG) QHS (1500 MG 1 TAB (1000 MG), 1 TAB 500 MG QHS
     Route: 065
     Dates: start: 20120208
  3. SIMVASTATIN. [Concomitant]
     Active Substance: SIMVASTATIN
     Indication: BLOOD TRIGLYCERIDES INCREASED
     Route: 048
  4. NIASPAN [Suspect]
     Active Substance: NIACIN
     Dosage: 1 TAB (1000 MG), 1 TAB (500 MG) QHS (1500 MG 1 TAB (1000 MG), 1 TAB 500 MG QHS
     Route: 065
     Dates: start: 2010, end: 201107
  5. LISINOPRIL. [Concomitant]
     Active Substance: LISINOPRIL
     Indication: PRODUCT USED FOR UNKNOWN INDICATION
     Route: 048
  6. NIASPAN [Suspect]
     Active Substance: NIACIN
     Dosage: 1 TAB (1000 MG), 1 TAB (500 MG) QHS (1500 MG 1 TAB (1000 MG), 1 TAB 500 MG QHS
     Route: 065
     Dates: start: 20120208
  7. OMEPRAZOLE. [Suspect]
     Active Substance: OMEPRAZOLE
     Indication: PRODUCT USED FOR UNKNOWN INDICATION
     Dosage: UNK
     Route: 048
  8. SIMVASTATIN. [Concomitant]
     Active Substance: SIMVASTATIN
     Indication: HIGH DENSITY LIPOPROTEIN DECREASED
  9. PRINIVIL [Suspect]
     Active Substance: LISINOPRIL
     Indication: PRODUCT USED FOR UNKNOWN INDICATION
     Dosage: UNK
     Route: 048
  10. SIMVASTATIN. [Concomitant]
     Active Substance: SIMVASTATIN
     Indication: PRODUCT USED FOR UNKNOWN INDICATION
  11. LIPITOR [Concomitant]
     Active Substance: ATORVASTATIN CALCIUM
     Indication: PRODUCT USED FOR UNKNOWN INDICATION
     Route: 048
  12. ZETIA [Concomitant]
     Active Substance: EZETIMIBE
     Indication: PRODUCT USED FOR UNKNOWN INDICATION
     Route: 048
  13. CRESTOR [Suspect]
     Active Substance: ROSUVASTATIN CALCIUM
     Indication: PRODUCT USED FOR UNKNOWN INDICATION
     Route: 048
  14. NIASPAN [Suspect]
     Active Substance: NIACIN
     Dosage: 1000 MG, EVERY NIGHT
     Route: 065
     Dates: start: 2008, end: 2008
  15. RANEXA [Suspect]
     Active Substance: RANOLAZINE
     Indication: PRODUCT USED FOR UNKNOWN INDICATION
     Dosage: UNK
     Route: 048
  16. ASPIRIN. [Concomitant]
     Active Substance: ASPIRIN
     Indication: PRODUCT USED FOR UNKNOWN INDICATION
     Route: 048
  17. PLAVIX [Concomitant]
     Active Substance: CLOPIDOGREL BISULFATE
     Indication: PRODUCT USED FOR UNKNOWN INDICATION
     Route: 048
  18. ISOSORBIDE DINITRATE. [Concomitant]
     Active Substance: ISOSORBIDE DINITRATE
     Indication: PRODUCT USED FOR UNKNOWN INDICATION
     Route: 048
  19. METFORMIN [Concomitant]
     Active Substance: METFORMIN HYDROCHLORIDE
     Indication: PRODUCT USED FOR UNKNOWN INDICATION
     Route: 048

REACTIONS (18)
  - Urticaria [Recovered/Resolved]
  - Pain in extremity [Recovered/Resolved]
  - Flushing [Not Recovered/Not Resolved]
  - Paraesthesia [Not Recovered/Not Resolved]
  - Lip swelling [Recovered/Resolved]
  - Myalgia [Unknown]
  - Nausea [Unknown]
  - Dyspnoea [Recovering/Resolving]
  - Chest pain [Recovered/Resolved]
  - Myocardial infarction [Recovered/Resolved]
  - Dyspnoea [Recovering/Resolving]
  - Coronary artery occlusion [Recovered/Resolved]
  - Mobility decreased [Unknown]
  - Chest discomfort [Recovered/Resolved]
  - Dyspnoea [Recovered/Resolved]
  - Muscle spasms [Unknown]
  - Tinnitus [Recovered/Resolved]
  - Vascular occlusion [Unknown]

NARRATIVE: CASE EVENT DATE: 2008
